FAERS Safety Report 6015721-7 (Version None)
Quarter: 2008Q4

REPORT INFORMATION
  Report Type: 
  Country: None (occurrence: None)
  Receive Date: 20081216
  Receipt Date: 20071121
  Transmission Date: 20090506
  Serious: Yes (Hospitalization, Other)
  Sender: FDA-Public Use
  Company Number: HQWYE152813SEP07

PATIENT
  Sex: Male
  Weight: 80 kg

DRUGS (1)
  1. EFFEXOR XR [Suspect]
     Indication: MAJOR DEPRESSION
     Dosage: 37.5 MG 1X PER 1 DAY, ORAL
     Route: 048

REACTIONS (2)
  - DYSTONIA [None]
  - TREMOR [None]
